FAERS Safety Report 24134339 (Version 1)
Quarter: 2024Q3

REPORT INFORMATION
  Report Type: Spontaneous
  Country: US (occurrence: US)
  Receive Date: 20240725
  Receipt Date: 20240725
  Transmission Date: 20241017
  Serious: Yes (Other)
  Sender: APOTEX
  Company Number: US-APOTEX-2024AP008627

PATIENT
  Age: 33 Year
  Sex: Male

DRUGS (8)
  1. MYCOPHENOLATE SODIUM [Suspect]
     Active Substance: MYCOPHENOLATE SODIUM
     Indication: Giant cell myocarditis
     Dosage: 1500 MILLIGRAM, BID
     Route: 065
  2. TACROLIMUS [Suspect]
     Active Substance: TACROLIMUS
     Indication: Giant cell myocarditis
     Dosage: UNK
     Route: 065
  3. PREDNISONE [Suspect]
     Active Substance: PREDNISONE
     Indication: Giant cell myocarditis
     Dosage: UNK
     Route: 065
  4. PREDNISONE [Suspect]
     Active Substance: PREDNISONE
     Dosage: 100 MILLIGRAM
     Route: 065
  5. METHYLPREDNISOLONE [Suspect]
     Active Substance: METHYLPREDNISOLONE
     Indication: Giant cell myocarditis
     Dosage: UNK
     Route: 042
  6. FLUCONAZOLE [Concomitant]
     Active Substance: FLUCONAZOLE
     Indication: Cryptococcus test positive
     Dosage: UNK
     Route: 065
  7. BASILIXIMAB [Concomitant]
     Active Substance: BASILIXIMAB
     Indication: Heart transplant
     Dosage: UNK
     Route: 065
  8. THYMOCYTE IMMUNE GLOBULIN NOS [Concomitant]
     Active Substance: THYMOCYTE IMMUNE GLOBULIN NOS
     Indication: Giant cell myocarditis
     Dosage: CUMULATIVE DOSE OF 4 MG/KG GIVEN OVER 8 DAYS
     Route: 065

REACTIONS (7)
  - Gastroenteritis Escherichia coli [Unknown]
  - Nocardiosis [Unknown]
  - Cryptococcosis [Unknown]
  - Hypophagia [Unknown]
  - Dyspnoea paroxysmal nocturnal [Unknown]
  - Norovirus infection [Unknown]
  - Asthenia [Unknown]
